FAERS Safety Report 15475447 (Version 8)
Quarter: 2020Q1

REPORT INFORMATION
  Report Type: Report from Study
  Country: US (occurrence: US)
  Receive Date: 20181008
  Receipt Date: 20200204
  Transmission Date: 20200409
  Serious: Yes (Hospitalization)
  Sender: FDA-Public Use
  Company Number: US-ACTELION-A-US2018-179682

PATIENT
  Age: 60 Year
  Sex: Female
  Weight: 92.06 kg

DRUGS (5)
  1. OPSUMIT [Suspect]
     Active Substance: MACITENTAN
     Indication: PULMONARY ARTERIAL HYPERTENSION
     Dosage: 10 MG, QD
     Route: 048
  2. REMODULIN [Suspect]
     Active Substance: TREPROSTINIL
     Indication: PRODUCT USED FOR UNKNOWN INDICATION
     Dosage: 60 NG/KG, PER MIN
     Route: 042
  3. REMODULIN [Suspect]
     Active Substance: TREPROSTINIL
     Dosage: 46 NG/KG, PER MIN
     Route: 042
  4. SILDENAFIL. [Suspect]
     Active Substance: SILDENAFIL
     Indication: PRODUCT USED FOR UNKNOWN INDICATION
     Dosage: UNK, TID
     Route: 048
  5. REMODULIN [Suspect]
     Active Substance: TREPROSTINIL
     Dosage: 68 NG/KG, PER MIN
     Route: 042

REACTIONS (13)
  - Encephalopathy [Unknown]
  - Vomiting [Unknown]
  - Weight decreased [Recovering/Resolving]
  - Heart rate increased [Recovering/Resolving]
  - Complication associated with device [Recovered/Resolved]
  - Hypotension [Unknown]
  - Blood pressure abnormal [Recovering/Resolving]
  - Blood glucose abnormal [Recovering/Resolving]
  - Unevaluable event [Unknown]
  - Asthenia [Unknown]
  - Diarrhoea [Unknown]
  - Hypertension [Unknown]
  - Nausea [Unknown]

NARRATIVE: CASE EVENT DATE: 20180827
